FAERS Safety Report 16750040 (Version 1)
Quarter: 2019Q3

REPORT INFORMATION
  Report Type: Spontaneous
  Country: FR (occurrence: FR)
  Receive Date: 20190828
  Receipt Date: 20190828
  Transmission Date: 20191005
  Serious: Yes (Hospitalization)
  Sender: FDA-Public Use
  Company Number: PHHY2019FR197167

PATIENT
  Age: 15 Year
  Sex: Female
  Weight: 55 kg

DRUGS (1)
  1. TEGRETOL [Suspect]
     Active Substance: CARBAMAZEPINE
     Indication: SUICIDE ATTEMPT
     Dosage: 2800 MG, 1 TOTAL
     Route: 048
     Dates: start: 20190731, end: 20190731

REACTIONS (4)
  - Depressed level of consciousness [Unknown]
  - Somnolence [Unknown]
  - Coma scale abnormal [Unknown]
  - Toxicity to various agents [Recovered/Resolved]

NARRATIVE: CASE EVENT DATE: 20190731
